FAERS Safety Report 6209435-8 (Version None)
Quarter: 2009Q2

REPORT INFORMATION
  Report Type: 
  Country: None (occurrence: None)
  Receive Date: 20090601
  Receipt Date: 20090522
  Transmission Date: 20091009
  Serious: Yes (Hospitalization)
  Sender: FDA-Public Use
  Company Number: GB-ROCHE-634242

PATIENT
  Sex: Female

DRUGS (7)
  1. PEG-INTERFERON ALFA 2A (RO 25-8310) [Suspect]
     Route: 058
     Dates: start: 20090505
  2. RIBAVIRIN [Suspect]
     Indication: THROMBOCYTOPENIA
     Route: 048
     Dates: start: 20090505
  3. BLINDED ELTROMBOPAG [Suspect]
     Indication: THROMBOCYTOPENIA
     Route: 048
     Dates: start: 20090505
  4. ELTROMBOPAG [Suspect]
     Indication: THROMBOCYTOPENIA
     Dosage: VARIABLE DOSES PER DAY
     Route: 048
     Dates: start: 20090320, end: 20090418
  5. ELTROMBOPAG [Suspect]
     Route: 048
     Dates: start: 20090418, end: 20090505
  6. CALCIUM CARBONATE [Concomitant]
     Dates: start: 20070101
  7. SODIUM CHLORIDE [Concomitant]
     Dates: start: 20090514

REACTIONS (4)
  - ACUTE ABDOMEN [None]
  - COLITIS [None]
  - NEUTROPENIA [None]
  - PYREXIA [None]
